FAERS Safety Report 5452938-4 (Version None)
Quarter: 2007Q3

REPORT INFORMATION
  Report Type: 
  Country: None (occurrence: None)
  Receive Date: 20070914
  Receipt Date: 20070906
  Transmission Date: 20080115
  Serious: Yes (Hospitalization)
  Sender: FDA-Public Use
  Company Number: US-AMGEN-US242295

PATIENT
  Age: 79 Year
  Sex: Female
  Weight: 109.4 kg

DRUGS (12)
  1. PROCRIT [Suspect]
     Indication: RENAL FAILURE CHRONIC
     Route: 058
  2. VENOFER [Concomitant]
     Dates: start: 20070901
  3. LOPRESSOR [Concomitant]
     Route: 048
  4. LASIX [Concomitant]
     Route: 048
  5. ZOCOR [Concomitant]
     Route: 048
  6. FERROUS SULFATE TAB [Concomitant]
     Route: 048
  7. HYDRALAZINE HCL [Concomitant]
     Route: 048
  8. LACTULOSE [Concomitant]
     Route: 048
  9. INSULIN [Concomitant]
  10. ZETIA [Concomitant]
  11. PRENATAL VITAMINS [Concomitant]
  12. COUMADIN [Concomitant]

REACTIONS (3)
  - ATRIAL FIBRILLATION [None]
  - BLOOD PRESSURE INCREASED [None]
  - NERVOUS SYSTEM DISORDER [None]
